FAERS Safety Report 4494667-X (Version None)
Quarter: 2004Q4

REPORT INFORMATION
  Report Type: 
  Country: None (occurrence: None)
  Receive Date: 20041103
  Receipt Date: 20041019
  Transmission Date: 20050328
  Serious: Yes (Death)
  Sender: FDA-Public Use
  Company Number: 8007800

PATIENT
  Age: 39 Year
  Sex: 0

DRUGS (4)
  1. ACETAMINOPHEN AND HYDROCODONE BITARTRATE [Suspect]
     Dosage: PO
     Route: 048
     Dates: end: 20030101
  2. ACETAMINOPHEN AND HYDROCODONE BITARTRATE [Suspect]
     Dosage: PAR
     Dates: end: 20030101
  3. MORPHINE [Suspect]
     Dosage: PO
     Route: 048
     Dates: end: 20030101
  4. MORPHINE [Suspect]
     Dosage: PAR
     Dates: end: 20030101

REACTIONS (2)
  - CARDIO-RESPIRATORY ARREST [None]
  - COMPLETED SUICIDE [None]
